FAERS Safety Report 10176466 (Version 1)
Quarter: 2014Q2

REPORT INFORMATION
  Report Type: Spontaneous
  Country: US (occurrence: US)
  Receive Date: 20140516
  Receipt Date: 20140516
  Transmission Date: 20141212
  Serious: Yes (Other)
  Sender: FDA-Public Use
  Company Number: US-PFIZER INC-2014133326

PATIENT
  Age: 44 Year
  Sex: Female
  Weight: 95.2 kg

DRUGS (4)
  1. LYRICA [Suspect]
     Indication: NERVE INJURY
     Dosage: 150 MG, 3X/DAY
     Dates: start: 2007
  2. LYRICA [Suspect]
     Dosage: 150 MG, 2X/DAY
  3. BUPROPION [Concomitant]
     Indication: DEPRESSION
     Dosage: 300 MG, DAILY
  4. PRO-AIR [Concomitant]
     Indication: ASTHMA
     Dosage: UNKNOWN DOSE AS NEEDED

REACTIONS (1)
  - Road traffic accident [Unknown]
